FAERS Safety Report 14657956 (Version 1)
Quarter: 2018Q1

REPORT INFORMATION
  Report Type: Spontaneous
  Country: US (occurrence: US)
  Receive Date: 20180320
  Receipt Date: 20180320
  Transmission Date: 20180509
  Serious: No
  Sender: FDA-Public Use
  Company Number: US-ASTRAZENECA-2018SE34326

PATIENT
  Sex: Female

DRUGS (2)
  1. RHINOCORT ALLERGY [Suspect]
     Active Substance: BUDESONIDE
     Indication: SINUS PAIN
     Route: 045
  2. RHINOCORT ALLERGY [Suspect]
     Active Substance: BUDESONIDE
     Indication: HYPERSENSITIVITY
     Route: 045

REACTIONS (3)
  - Product use in unapproved indication [Unknown]
  - Nasal dryness [Not Recovered/Not Resolved]
  - Burning sensation [Not Recovered/Not Resolved]
